FAERS Safety Report 12220632 (Version 1)
Quarter: 2016Q1

REPORT INFORMATION
  Report Type: Spontaneous
  Country: JP (occurrence: JP)
  Receive Date: 20160330
  Receipt Date: 20160330
  Transmission Date: 20160526
  Serious: Yes (Hospitalization, Other)
  Sender: FDA-Public Use
  Company Number: PHJP2016JP006962

PATIENT
  Age: 90 Year
  Sex: Male

DRUGS (2)
  1. IMATINIB [Suspect]
     Active Substance: IMATINIB
     Indication: GASTROINTESTINAL STROMAL TUMOUR
     Dosage: 400 MG, UNK
     Route: 048
  2. IMATINIB [Suspect]
     Active Substance: IMATINIB
     Dosage: 200 MG, QOD
     Route: 048

REACTIONS (8)
  - Oedema [Unknown]
  - Rectal cancer [Unknown]
  - Gastrointestinal stromal tumour [Unknown]
  - Blood potassium increased [Unknown]
  - Therapeutic response decreased [Unknown]
  - Concomitant disease progression [Unknown]
  - Malignant neoplasm progression [Unknown]
  - Blood creatinine increased [Unknown]
